FAERS Safety Report 5523266-3 (Version None)
Quarter: 2007Q4

REPORT INFORMATION
  Report Type: 
  Country: None (occurrence: None)
  Receive Date: 20071119
  Receipt Date: 20071119
  Transmission Date: 20080405
  Serious: Yes (Other)
  Sender: FDA-Public Use
  Company Number: None

PATIENT
  Age: 46 Year
  Sex: Female
  Weight: 63.5036 kg

DRUGS (1)
  1. NECON 1.0 MG NORETHINDRONE MEDCO PHARMACY LAS VEGAS NV [Suspect]
     Indication: CONTRACEPTION
     Dosage: 1 TAB DAILY PO
     Route: 048
     Dates: start: 19880101, end: 20071117

REACTIONS (1)
  - DRUG DISPENSING ERROR [None]
